FAERS Safety Report 8056644-1 (Version None)
Quarter: 2012Q1

REPORT INFORMATION
  Report Type: 
  Country: None (occurrence: None)
  Receive Date: 20120119
  Receipt Date: 20120111
  Transmission Date: 20120608
  Serious: Yes (Other)
  Sender: FDA-Public Use
  Company Number: CHPA2012US001068

PATIENT
  Age: 51 Year
  Sex: Female

DRUGS (3)
  1. EXCEDRIN MIGRAINE CAPLETS [Suspect]
     Indication: MIGRAINE
     Dosage: 2 DF, PRN
     Route: 048
     Dates: end: 20080101
  2. EXCEDRIN TENSION HEADACHE CAPLETS [Concomitant]
     Indication: HEADACHE
     Dosage: UNK DF, UNK
  3. MAXALT [Suspect]
     Dosage: UNK, UNK

REACTIONS (2)
  - FEELING ABNORMAL [None]
  - ANEURYSM [None]
